FAERS Safety Report 7352767-0 (Version None)
Quarter: 2011Q1

REPORT INFORMATION
  Report Type: 
  Country: None (occurrence: None)
  Receive Date: 20110304
  Receipt Date: 20100331
  Transmission Date: 20110831
  Serious: Yes (Hospitalization)
  Sender: FDA-Public Use
  Company Number: IT 2010 0016

PATIENT
  Age: 38 Year
  Sex: Female

DRUGS (1)
  1. LIPIODOL UF (ETHIODIZED OIL) [Suspect]
     Indication: HYSTEROSALPINGOGRAM
     Dosage: INTAKE RATE: 1/1, INTRAVENOUS
     Route: 042
     Dates: start: 20100130, end: 20100130

REACTIONS (2)
  - LARYNGOSPASM [None]
  - CYANOSIS [None]
